FAERS Safety Report 6702478-7 (Version None)
Quarter: 2010Q2

REPORT INFORMATION
  Report Type: 
  Country: None (occurrence: None)
  Receive Date: 20100429
  Receipt Date: 20100426
  Transmission Date: 20101027
  Serious: Yes (Hospitalization)
  Sender: FDA-Public Use
  Company Number: B0649577A

PATIENT
  Sex: Male

DRUGS (3)
  1. FORTUM [Suspect]
     Indication: BODY TEMPERATURE INCREASED
     Route: 042
     Dates: start: 20090501
  2. AZACTAM [Suspect]
     Route: 042
     Dates: start: 20090501
  3. VANCOMYCIN HCL [Concomitant]
     Route: 065

REACTIONS (3)
  - CLOSTRIDIUM DIFFICILE COLITIS [None]
  - PSEUDOMEMBRANOUS COLITIS [None]
  - PYREXIA [None]
